FAERS Safety Report 4580913-0 (Version None)
Quarter: 2005Q1

REPORT INFORMATION
  Report Type: 
  Country: None (occurrence: None)
  Receive Date: 20050214
  Receipt Date: 20040624
  Transmission Date: 20050727
  Serious: No
  Sender: FDA-Public Use
  Company Number: US-GLAXOSMITHKLINE-A0515879A

PATIENT
  Age: 32 Year
  Sex: Female

DRUGS (6)
  1. LAMICTAL [Suspect]
     Dosage: 50MG PER DAY
     Route: 048
     Dates: start: 20040616, end: 20040623
  2. SYNTHROID [Concomitant]
  3. WELLBUTRIN XL [Concomitant]
  4. TRILEPTAL [Concomitant]
  5. SEROQUEL [Concomitant]
  6. MULTI-VITAMIN [Concomitant]

REACTIONS (3)
  - MEDICATION ERROR [None]
  - PAIN [None]
  - RASH [None]
